FAERS Safety Report 10169870 (Version 2)
Quarter: 2014Q2

REPORT INFORMATION
  Report Type: Report from Study
  Country: CA (occurrence: CA)
  Receive Date: 20140513
  Receipt Date: 20140513
  Transmission Date: 20141212
  Serious: Yes (Hospitalization, Other)
  Sender: FDA-Public Use
  Company Number: CA-ABBVIE-08P-028-0444083-00

PATIENT
  Age: 54 Year
  Sex: Male
  Weight: 81.72 kg

DRUGS (3)
  1. HUMIRA 40 MG/0.8 ML PEN [Suspect]
     Indication: ANKYLOSING SPONDYLITIS
     Route: 058
     Dates: start: 20070301
  2. XALATAN [Concomitant]
     Indication: GLAUCOMA
     Route: 061
     Dates: start: 1989
  3. DILAUDID [Concomitant]
     Indication: PAIN
     Route: 048
     Dates: start: 1990

REACTIONS (12)
  - Haemorrhage [Recovered/Resolved]
  - Sinusitis [Not Recovered/Not Resolved]
  - Chronic sinusitis [Not Recovered/Not Resolved]
  - Sinus congestion [Not Recovered/Not Resolved]
  - Libido decreased [Unknown]
  - Oropharyngeal pain [Unknown]
  - Ear pain [Unknown]
  - Bronchopneumonia [Unknown]
  - Headache [Unknown]
  - Insomnia [Unknown]
  - Immunodeficiency [Unknown]
  - Pneumonia [Recovered/Resolved]
